FAERS Safety Report 7111215-6 (Version None)
Quarter: 2010Q4

REPORT INFORMATION
  Report Type: 
  Country: None (occurrence: None)
  Receive Date: 20101118
  Receipt Date: 20091203
  Transmission Date: 20110411
  Serious: No
  Sender: FDA-Public Use
  Company Number: US-PFIZER INC-2009307535

PATIENT

DRUGS (2)
  1. ZYVOX [Suspect]
     Route: 042
  2. PAXIL [Concomitant]
     Dosage: 20MG

REACTIONS (1)
  - BODY TEMPERATURE INCREASED [None]
